FAERS Safety Report 8200772-4 (Version None)
Quarter: 2012Q1

REPORT INFORMATION
  Report Type: 
  Country: None (occurrence: None)
  Receive Date: 20120301
  Receipt Date: 20120217
  Transmission Date: 20120608
  Serious: Yes (Hospitalization)
  Sender: FDA-Public Use
  Company Number: AECAN201200087

PATIENT
  Age: 61 Year
  Sex: Male
  Weight: 93 kg

DRUGS (11)
  1. GAMUNEX [Suspect]
  2. GAMUNEX [Suspect]
  3. GAMUNEX [Suspect]
  4. GAMUNEX [Suspect]
  5. IGIVNEX [Suspect]
     Dosage: 90 GM;QD;IV
     Route: 042
     Dates: start: 20111026, end: 20111026
  6. IGIVNEX [Suspect]
     Dosage: 90 GM;QD;IV
     Route: 042
     Dates: start: 20110922, end: 20110922
  7. GAMUNEX [Suspect]
     Indication: IDIOPATHIC THROMBOCYTOPENIC PURPURA
     Dosage: 90 GM;QD;IV
     Route: 042
     Dates: start: 20111027, end: 20111027
  8. GAMUNEX [Suspect]
     Indication: IDIOPATHIC THROMBOCYTOPENIC PURPURA
     Dosage: 90 GM;QD;IV
     Route: 042
     Dates: start: 20111010, end: 20111011
  9. GAMUNEX [Suspect]
     Indication: IDIOPATHIC THROMBOCYTOPENIC PURPURA
     Dosage: 90 GM;QD;IV
     Route: 042
     Dates: start: 20111108, end: 20111109
  10. GAMUNEX [Suspect]
     Indication: IDIOPATHIC THROMBOCYTOPENIC PURPURA
     Dosage: 90 GM;QD;IV
     Route: 042
     Dates: start: 20110921, end: 20110922
  11. GAMUNEX [Suspect]

REACTIONS (2)
  - HAEMOLYSIS [None]
  - CHEST PAIN [None]
